FAERS Safety Report 8080254-3 (Version None)
Quarter: 2012Q1

REPORT INFORMATION
  Report Type: 
  Country: None (occurrence: None)
  Receive Date: 20120130
  Receipt Date: 20120125
  Transmission Date: 20120608
  Serious: Yes (Death, Hospitalization)
  Sender: FDA-Public Use
  Company Number: DE-SANOFI-AVENTIS-2011SA006751

PATIENT
  Age: 77 Year
  Sex: Male
  Weight: 94 kg

DRUGS (10)
  1. SIMVASTATIN [Concomitant]
  2. AMLODIPINE [Concomitant]
  3. TORSEMIDE [Concomitant]
  4. BISOPROLOL [Concomitant]
  5. PHENPROCOUMON [Concomitant]
  6. METOCLOPRAMIDE [Concomitant]
  7. PREDNISOLONE [Suspect]
     Indication: PROSTATE CANCER
     Dates: start: 20110120
  8. DEKRISTOL [Concomitant]
  9. CABAZITAXEL [Suspect]
     Indication: PROSTATE CANCER
     Route: 042
     Dates: start: 20110120, end: 20110120
  10. PANTOPRAZOLE [Concomitant]

REACTIONS (5)
  - ENTEROCOLITIS [None]
  - DISEASE PROGRESSION [None]
  - SEPSIS [None]
  - PANCYTOPENIA [None]
  - RENAL FAILURE [None]
